FAERS Safety Report 4608501-8 (Version None)
Quarter: 2005Q1

REPORT INFORMATION
  Report Type: 
  Country: None (occurrence: None)
  Receive Date: 20050315
  Receipt Date: 20041102
  Transmission Date: 20050727
  Serious: Yes (Hospitalization)
  Sender: FDA-Public Use
  Company Number: 200414176FR

PATIENT
  Age: 78 Year
  Sex: Female
  Weight: 73 kg

DRUGS (13)
  1. KETEK [Suspect]
     Indication: SINUSITIS
     Route: 048
     Dates: start: 20040825, end: 20040829
  2. DI-ANTALVIC [Suspect]
     Dosage: DOSE UNIT: UNITS
     Route: 048
  3. MEDIATENSYL [Concomitant]
     Route: 048
  4. EFFEXOR [Concomitant]
  5. FORADIL [Concomitant]
     Dosage: DOSE: 12-12
     Route: 055
  6. OROCAL [Concomitant]
     Route: 048
  7. ACTONEL [Concomitant]
     Route: 048
  8. HYZAAR [Concomitant]
     Route: 048
  9. TEMESTA [Concomitant]
     Dosage: DOSE: 1.5-1
     Route: 048
  10. OGAST [Concomitant]
     Route: 048
  11. DIOVENOR [Concomitant]
     Route: 048
  12. FLIXOTIDE [Concomitant]
     Dosage: DOSE: 500-500
     Route: 055
  13. VOLTARENE A LIBERATION PROLONGEE [Concomitant]
     Route: 048

REACTIONS (8)
  - LEUKOCYTOCLASTIC VASCULITIS [None]
  - MUSCULOSKELETAL PAIN [None]
  - NECROSIS [None]
  - OEDEMA PERIPHERAL [None]
  - RHINITIS [None]
  - SINUSITIS [None]
  - TREATMENT NONCOMPLIANCE [None]
  - VASCULAR PURPURA [None]
